FAERS Safety Report 6520797-4 (Version None)
Quarter: 2009Q4

REPORT INFORMATION
  Report Type: 
  Country: None (occurrence: None)
  Receive Date: 20091229
  Receipt Date: 20091214
  Transmission Date: 20100525
  Serious: Yes (Other)
  Sender: FDA-Public Use
  Company Number: US-PFIZER INC-2009309849

PATIENT
  Age: 52 Year
  Sex: Female
  Weight: 68.027 kg

DRUGS (6)
  1. GEODON [Suspect]
     Indication: EMOTIONAL DISORDER
     Dosage: 20 MG, 2X/DAY
     Route: 048
     Dates: start: 20091119
  2. NEURONTIN [Suspect]
     Indication: NEURALGIA
     Dosage: 100 MG, 3X/DAY
     Dates: start: 20091119
  3. LYRICA [Suspect]
  4. PROZAC [Suspect]
  5. ZYPREXA [Suspect]
  6. DEXLANSOPRAZOLE [Concomitant]
     Dosage: 60 MG, 1X/DAY
     Dates: start: 20080101

REACTIONS (8)
  - DRUG INTOLERANCE [None]
  - DYSKINESIA [None]
  - DYSPHONIA [None]
  - FATIGUE [None]
  - GAIT DISTURBANCE [None]
  - IRRITABILITY [None]
  - MUSCLE TIGHTNESS [None]
  - THROAT TIGHTNESS [None]
